FAERS Safety Report 25286135 (Version 1)
Quarter: 2025Q2

REPORT INFORMATION
  Report Type: Spontaneous
  Country: US (occurrence: US)
  Receive Date: 20250509
  Receipt Date: 20250509
  Transmission Date: 20250716
  Serious: No
  Sender: LUPIN
  Company Number: US-LUPIN PHARMACEUTICALS INC.-2025-03871

PATIENT

DRUGS (1)
  1. MIRABEGRON [Suspect]
     Active Substance: MIRABEGRON
     Indication: Prostate infection
     Dosage: 1 DOSAGE FORM, QD (ONCE- DAILY)

REACTIONS (2)
  - Product use in unapproved indication [Unknown]
  - No adverse event [Unknown]
